FAERS Safety Report 4836144-X (Version None)
Quarter: 2005Q4

REPORT INFORMATION
  Report Type: 
  Country: None (occurrence: None)
  Receive Date: 20051123
  Receipt Date: 20050908
  Transmission Date: 20060501
  Serious: Yes (Disabling, Other)
  Sender: FDA-Public Use
  Company Number: US-MERCK-0509USA01036

PATIENT
  Sex: Female

DRUGS (1)
  1. VIOXX [Suspect]
     Route: 048

REACTIONS (15)
  - BACK PAIN [None]
  - BLOOD PRESSURE ABNORMAL [None]
  - BLOOD PRESSURE INCREASED [None]
  - BRAIN NEOPLASM [None]
  - DIFFICULTY IN WALKING [None]
  - DIZZINESS [None]
  - DYSPNOEA [None]
  - FALL [None]
  - HAEMATOCHEZIA [None]
  - HIP FRACTURE [None]
  - MALAISE [None]
  - OEDEMA PERIPHERAL [None]
  - PALPITATIONS [None]
  - POISONING [None]
  - ULCER HAEMORRHAGE [None]
